FAERS Safety Report 12723693 (Version 2)
Quarter: 2017Q2

REPORT INFORMATION
  Report Type: Report from Study
  Country: JP (occurrence: JP)
  Receive Date: 20160908
  Receipt Date: 20170615
  Transmission Date: 20170830
  Serious: Yes (Other)
  Sender: FDA-Public Use
  Company Number: PHHY2013JP018741

PATIENT
  Age: 36 Year
  Sex: Male
  Weight: 51 kg

DRUGS (13)
  1. EPIRUBICIN HYDROCHLORIDE. [Concomitant]
     Active Substance: EPIRUBICIN HYDROCHLORIDE
     Dosage: UNK
     Route: 013
     Dates: start: 201012
  2. EPIRUBICIN HYDROCHLORIDE. [Concomitant]
     Active Substance: EPIRUBICIN HYDROCHLORIDE
     Dosage: UNK
     Route: 013
     Dates: start: 201007
  3. MITOMYCIN C [Concomitant]
     Active Substance: MITOMYCIN
     Dosage: UNK
     Route: 013
     Dates: start: 201012
  4. MITOMYCIN C [Concomitant]
     Active Substance: MITOMYCIN
     Indication: PANCREATIC NEUROENDOCRINE TUMOUR
     Dosage: UNK
     Route: 013
     Dates: start: 201001
  5. SANDOSTATIN [Concomitant]
     Active Substance: OCTREOTIDE ACETATE
     Indication: PANCREATIC NEUROENDOCRINE TUMOUR
     Dosage: 20 MG, UNK
     Route: 030
     Dates: start: 20100219
  6. MITOMYCIN C [Concomitant]
     Active Substance: MITOMYCIN
     Dosage: UNK
     Route: 013
     Dates: start: 201004
  7. MITOMYCIN C [Concomitant]
     Active Substance: MITOMYCIN
     Dosage: UNK
     Route: 013
     Dates: start: 201007
  8. MITOMYCIN C [Concomitant]
     Active Substance: MITOMYCIN
     Dosage: UNK
     Route: 013
     Dates: start: 201104
  9. AFINITOR [Suspect]
     Active Substance: EVEROLIMUS
     Indication: PANCREATIC NEUROENDOCRINE TUMOUR
     Dosage: 10 MG, QD
     Route: 048
     Dates: start: 20120124
  10. EPIRUBICIN HYDROCHLORIDE. [Concomitant]
     Active Substance: EPIRUBICIN HYDROCHLORIDE
     Dosage: UNK
     Route: 013
     Dates: start: 201004
  11. MITOMYCIN C [Concomitant]
     Active Substance: MITOMYCIN
     Dosage: UNK
     Route: 013
     Dates: start: 201107
  12. EPIRUBICIN HYDROCHLORIDE. [Concomitant]
     Active Substance: EPIRUBICIN HYDROCHLORIDE
     Indication: PANCREATIC NEUROENDOCRINE TUMOUR
     Route: 013
     Dates: start: 201001
  13. MITOMYCIN C [Concomitant]
     Active Substance: MITOMYCIN
     Dosage: UNK
     Route: 013
     Dates: start: 201109

REACTIONS (2)
  - Blood triglycerides increased [Unknown]
  - Diabetes mellitus [Recovering/Resolving]

NARRATIVE: CASE EVENT DATE: 20120606
